FAERS Safety Report 5782498-X (Version None)
Quarter: 2008Q2

REPORT INFORMATION
  Report Type: 
  Country: None (occurrence: None)
  Receive Date: 20080623
  Receipt Date: 20080613
  Transmission Date: 20081010
  Serious: Yes (Other)
  Sender: FDA-Public Use
  Company Number: BE-PFIZER INC-2008046033

PATIENT
  Sex: Female

DRUGS (1)
  1. SALAZOPYRINE [Suspect]
     Indication: RHEUMATOID ARTHRITIS
     Route: 048
     Dates: start: 20080511, end: 20080525

REACTIONS (6)
  - FACE OEDEMA [None]
  - MALAISE [None]
  - OEDEMA MOUTH [None]
  - OROPHARYNGEAL BLISTERING [None]
  - PYREXIA [None]
  - RASH ERYTHEMATOUS [None]
